FAERS Safety Report 11800909 (Version 1)
Quarter: 2015Q4

REPORT INFORMATION
  Report Type: Spontaneous
  Country: GR (occurrence: GR)
  Receive Date: 20151204
  Receipt Date: 20151204
  Transmission Date: 20160305
  Serious: Yes (Death, Hospitalization)
  Sender: FDA-Public Use
  Company Number: GR-ROCHE-1671453

PATIENT
  Age: 55 Year
  Sex: Male

DRUGS (1)
  1. ESBRIET [Suspect]
     Active Substance: PIRFENIDONE
     Indication: IDIOPATHIC PULMONARY FIBROSIS
     Route: 048
     Dates: start: 20150505, end: 201510

REACTIONS (3)
  - Pseudomonas infection [Recovering/Resolving]
  - Cardiopulmonary failure [Fatal]
  - Inflammatory marker increased [Unknown]

NARRATIVE: CASE EVENT DATE: 201510
